FAERS Safety Report 9194355 (Version 1)
Quarter: 2013Q1

REPORT INFORMATION
  Report Type: Spontaneous
  Country: US (occurrence: US)
  Receive Date: 20130327
  Receipt Date: 20130327
  Transmission Date: 20140127
  Serious: Yes (Hospitalization)
  Sender: FDA-Public Use
  Company Number: US-RB-051485-13

PATIENT
  Age: 36 Year
  Sex: Female

DRUGS (2)
  1. BUPRENORPHINE [Suspect]
     Indication: DRUG DEPENDENCE
     Dosage: FREQUENCY: 2 TABLETS
     Route: 060
     Dates: start: 20130313, end: 20130314
  2. HEROIN [Suspect]
     Indication: PRODUCT USED FOR UNKNOWN INDICATION
     Dosage: DOSING DETAILS UNKNOWN
     Route: 065

REACTIONS (8)
  - Drug withdrawal syndrome [Recovering/Resolving]
  - Panic disorder [Recovering/Resolving]
  - Hyperhidrosis [Recovered/Resolved]
  - Anxiety [Recovering/Resolving]
  - Faecal incontinence [Recovered/Resolved]
  - Piloerection [Recovered/Resolved]
  - Vomiting [Recovered/Resolved]
  - Hot flush [Recovered/Resolved]
